FAERS Safety Report 8576827-1 (Version None)
Quarter: 2012Q3

REPORT INFORMATION
  Report Type: 
  Country: None (occurrence: None)
  Receive Date: 20120725
  Receipt Date: 20120718
  Transmission Date: 20120928
  Serious: Yes (Life-Threatening, Hospitalization, Other)
  Sender: FDA-Public Use
  Company Number: US-2012-10967

PATIENT
  Age: 8 Year
  Sex: Male

DRUGS (4)
  1. BUSULFEX [Suspect]
     Indication: BONE MARROW CONDITIONING REGIMEN
     Dosage: 16 MG/KG, INTRAVENOUS
     Route: 042
  2. CYCLOPHOSPHAMIDE [Suspect]
     Indication: BONE MARROW CONDITIONING REGIMEN
     Dosage: 200 MG/KG, INTRAVENOUS
     Route: 042
  3. CYCLOSPORINE [Suspect]
     Indication: PROPHYLAXIS AGAINST GRAFT VERSUS HOST DISEASE
  4. PREDNISOLONE [Suspect]
     Indication: GRAFT VERSUS HOST DISEASE
     Dosage: 4 MG/KG, DAILY DOSE

REACTIONS (16)
  - ACUTE GRAFT VERSUS HOST DISEASE IN SKIN [None]
  - KAPOSI'S SARCOMA [None]
  - GRAFT VERSUS HOST DISEASE IN LIVER [None]
  - BONE MARROW DISORDER [None]
  - PNEUMOTHORAX [None]
  - RESPIRATORY FAILURE [None]
  - GRAFT VERSUS HOST DISEASE IN INTESTINE [None]
  - ORAL MUCOSAL EXFOLIATION [None]
  - STRIDOR [None]
  - LUNG CONSOLIDATION [None]
  - PULMONARY MASS [None]
  - LUNG INFILTRATION [None]
  - GRAFT VERSUS HOST DISEASE [None]
  - GINGIVAL HYPERTROPHY [None]
  - RASH MACULAR [None]
  - GINGIVAL BLEEDING [None]
